FAERS Safety Report 18067354 (Version 1)
Quarter: 2020Q3

REPORT INFORMATION
  Report Type: Spontaneous
  Country: KR (occurrence: KR)
  Receive Date: 20200724
  Receipt Date: 20200724
  Transmission Date: 20201103
  Serious: Yes (Other)
  Sender: FDA-Public Use
  Company Number: KR-BAYER-2020-147495

PATIENT
  Age: 68 Year
  Sex: Male

DRUGS (3)
  1. LOPINAVIR + RITONAVIR [Suspect]
     Active Substance: LOPINAVIR\RITONAVIR
     Indication: COVID-19 PNEUMONIA
     Dosage: UNK
     Dates: start: 20200313
  2. INTERFERON BETA ? 1B [Suspect]
     Active Substance: INTERFERON BETA-1B
     Indication: COVID-19 PNEUMONIA
     Dosage: UNK
     Dates: start: 20200313
  3. HYDROXYCHLOROQUINE [Suspect]
     Active Substance: HYDROXYCHLOROQUINE
     Indication: COVID-19 PNEUMONIA
     Dosage: UNK
     Dates: start: 20200313

REACTIONS (4)
  - Oxygen saturation decreased [Recovered/Resolved]
  - Product use in unapproved indication [None]
  - Off label use [None]
  - Therapeutic product effective for unapproved indication [None]

NARRATIVE: CASE EVENT DATE: 20200313
